FAERS Safety Report 4959647-6 (Version None)
Quarter: 2006Q1

REPORT INFORMATION
  Report Type: 
  Country: None (occurrence: None)
  Receive Date: 20060331
  Receipt Date: 20060322
  Transmission Date: 20060701
  Serious: Yes (Hospitalization)
  Sender: FDA-Public Use
  Company Number: DE-ROCHE-441181

PATIENT
  Age: 62 Year
  Sex: Male

DRUGS (2)
  1. MYCOPHENOLATE MOFETIL [Suspect]
     Route: 065
     Dates: start: 20050804
  2. FK506 [Suspect]
     Route: 048
     Dates: start: 20050804

REACTIONS (2)
  - BENIGN PROSTATIC HYPERPLASIA [None]
  - HAEMORRHOIDS [None]
